FAERS Safety Report 10441481 (Version 1)
Quarter: 2014Q3

REPORT INFORMATION
  Report Type: Spontaneous
  Country: US (occurrence: US)
  Receive Date: 20140909
  Receipt Date: 20140909
  Transmission Date: 20150326
  Serious: Yes (Other)
  Sender: FDA-Public Use
  Company Number: US-JNJFOC-20140903475

PATIENT
  Sex: Female
  Weight: 38.56 kg

DRUGS (4)
  1. RISPERIDONE. [Suspect]
     Active Substance: RISPERIDONE
     Indication: BIPOLAR DISORDER
     Dosage: 1 MG IN THE MORNING AND 2 MG IN THE NIGHT
     Route: 048
     Dates: start: 2010
  2. RISPERIDONE. [Suspect]
     Active Substance: RISPERIDONE
     Indication: BIPOLAR DISORDER
     Dosage: ONE HALF 1 MG TABLET
     Route: 048
     Dates: start: 2010
  3. RISPERIDONE. [Suspect]
     Active Substance: RISPERIDONE
     Indication: BIPOLAR DISORDER
     Dosage: 0.25 MG ONCE DAILY IN THE MORNING AND 0.50 MG ONCE IN THE NIGHT
     Route: 048
     Dates: start: 2010, end: 2010
  4. RISPERIDONE. [Suspect]
     Active Substance: RISPERIDONE
     Indication: BIPOLAR DISORDER
     Dosage: ONE AND ONE TABLET OF 1 MG TABLET
     Route: 048
     Dates: start: 2010

REACTIONS (6)
  - Wrong technique in drug usage process [Unknown]
  - Disturbance in attention [Unknown]
  - Head discomfort [Unknown]
  - Hallucination [Recovered/Resolved]
  - Headache [Unknown]
  - Attention deficit/hyperactivity disorder [Not Recovered/Not Resolved]

NARRATIVE: CASE EVENT DATE: 2010
